FAERS Safety Report 10312061 (Version 1)
Quarter: 2014Q3

REPORT INFORMATION
  Report Type: Spontaneous
  Country: JO (occurrence: None)
  Receive Date: 20140715
  Receipt Date: 20140715
  Transmission Date: 20150326
  Serious: Yes (Other)
  Sender: FDA-Public Use
  Company Number: 7304870

PATIENT
  Sex: Male

DRUGS (3)
  1. VITAMIN D [Suspect]
     Active Substance: CHOLECALCIFEROL
     Indication: VITAMIN D DEFICIENCY
     Dosage: PRODUCT TAKEN BY MOTHER
  2. L-THYROXIN [Suspect]
     Active Substance: LEVOTHYROXINE SODIUM
     Indication: HYPOTHYROIDISM
     Dosage: PRODUCT TAKEN BY MOTHER
  3. CALCIUM (CALCIUM) (CALCIUM) [Suspect]
     Active Substance: CALCIUM
     Indication: PRODUCT USED FOR UNKNOWN INDICATION
     Dosage: PRODUCT TAKEN BY MOTHER

REACTIONS (2)
  - Nephrocalcinosis [None]
  - Exposure during breast feeding [None]
